FAERS Safety Report 6726379-3 (Version None)
Quarter: 2010Q2

REPORT INFORMATION
  Report Type: 
  Country: None (occurrence: None)
  Receive Date: 20100514
  Receipt Date: 20100506
  Transmission Date: 20101027
  Serious: Yes (Other)
  Sender: FDA-Public Use
  Company Number: A0859603A

PATIENT
  Sex: Male

DRUGS (1)
  1. ADVAIR DISKUS 100/50 [Suspect]
     Indication: DRUG USE FOR UNKNOWN INDICATION
     Route: 065

REACTIONS (7)
  - DIARRHOEA [None]
  - EAR DISORDER [None]
  - MIGRAINE [None]
  - MOBILITY DECREASED [None]
  - MUSCLE ATROPHY [None]
  - NASAL DISCOMFORT [None]
  - WEIGHT DECREASED [None]
